FAERS Safety Report 20375015 (Version 1)
Quarter: 2022Q1

REPORT INFORMATION
  Report Type: Spontaneous
  Country: US (occurrence: US)
  Receive Date: 20220125
  Receipt Date: 20220125
  Transmission Date: 20220424
  Serious: No
  Sender: FDA-Public Use
  Company Number: ENDG21-05111

PATIENT
  Sex: Female

DRUGS (4)
  1. METHYLPREDNISOLONE [Suspect]
     Active Substance: METHYLPREDNISOLONE
     Indication: Chest discomfort
     Dosage: 4 MG, UNKNOWN
     Route: 065
     Dates: start: 20210807, end: 20210807
  2. METHYLPREDNISOLONE [Suspect]
     Active Substance: METHYLPREDNISOLONE
     Dosage: 4 MG, ONE AT SUPPER AND ONE AT BEDTIME AS PRESCRIBED FOR DAY TWO
     Route: 065
     Dates: start: 20210807, end: 20210807
  3. METHYLPREDNISOLONE [Suspect]
     Active Substance: METHYLPREDNISOLONE
     Dosage: 4 MG, ONE TABLET IN THE MORNING, ONE AT LUNCH, ONE AT SUPPER, AND ONE AT BEDTIME
     Route: 065
     Dates: start: 20210808, end: 20210808
  4. METHYLPREDNISOLONE [Suspect]
     Active Substance: METHYLPREDNISOLONE
     Dosage: 4 MG, AS PER DAY THREE DIRECTIONS
     Route: 065
     Dates: start: 20210809

REACTIONS (5)
  - Chest discomfort [Recovering/Resolving]
  - Cough [Recovering/Resolving]
  - Drug effective for unapproved indication [Not Recovered/Not Resolved]
  - Off label use [Not Recovered/Not Resolved]
  - Product dose omission issue [Recovered/Resolved]

NARRATIVE: CASE EVENT DATE: 20210801
